FAERS Safety Report 7167862-9 (Version None)
Quarter: 2010Q4

REPORT INFORMATION
  Report Type: 
  Country: None (occurrence: None)
  Receive Date: 20101216
  Receipt Date: 20100301
  Transmission Date: 20110411
  Serious: No
  Sender: FDA-Public Use
  Company Number: US-TYCO HEALTHCARE/MALLINCKRODT-T201000752

PATIENT
  Sex: Female
  Weight: 54.422 kg

DRUGS (5)
  1. OXYCODONE HCL AND ACETAMINOPHEN [Suspect]
     Indication: PROCEDURAL PAIN
     Dosage: 1-2 TABLETS EVERY 4-6 HOURS PRN
     Route: 048
     Dates: start: 20100224
  2. IBUPROFEN [Concomitant]
     Indication: PAIN
     Dosage: 800 MG, TID
     Route: 048
     Dates: start: 20100124
  3. MULTI-VIT [Concomitant]
     Dosage: UNK
  4. VITAMIN D [Concomitant]
     Dosage: UNK
  5. FISH OIL [Concomitant]
     Dosage: UNK

REACTIONS (5)
  - DRUG DIVERSION [None]
  - DRUG EFFECT DECREASED [None]
  - DRUG EFFECT DELAYED [None]
  - DRUG EFFECT INCREASED [None]
  - DRUG INEFFECTIVE [None]
